FAERS Safety Report 7408307-0 (Version None)
Quarter: 2011Q2

REPORT INFORMATION
  Report Type: 
  Country: None (occurrence: None)
  Receive Date: 20110412
  Receipt Date: 20110131
  Transmission Date: 20111010
  Serious: Yes (Other)
  Sender: FDA-Public Use
  Company Number: GB-KINGPHARMUSA00001-K201100410

PATIENT
  Sex: Male

DRUGS (2)
  1. OXYCONTIN [Suspect]
     Indication: PAIN
     Dosage: 800 MG, DAILY
     Route: 065
  2. AVINZA [Suspect]
     Indication: PAIN
     Dosage: UNK
     Dates: start: 20100601

REACTIONS (1)
  - CARDIAC OPERATION [None]
